FAERS Safety Report 14859209 (Version 1)
Quarter: 2018Q2

REPORT INFORMATION
  Report Type: Spontaneous
  Country: SE (occurrence: SE)
  Receive Date: 20180508
  Receipt Date: 20180508
  Transmission Date: 20180711
  Serious: Yes (Hospitalization)
  Sender: FDA-Public Use
  Company Number: SE-TEVA-2018-SE-889324

PATIENT
  Age: 53 Year
  Sex: Female

DRUGS (20)
  1. OMEPRAZOLE. [Concomitant]
     Active Substance: OMEPRAZOLE
     Route: 065
     Dates: start: 20160425
  2. LIVOSTIN [Concomitant]
     Active Substance: LEVOCABASTINE HYDROCHLORIDE
     Route: 065
     Dates: start: 20130605
  3. OXYCODONE [Concomitant]
     Active Substance: OXYCODONE
     Route: 065
     Dates: start: 20131225
  4. OXYNORM [Concomitant]
     Active Substance: OXYCODONE HYDROCHLORIDE
     Route: 065
     Dates: start: 20131226
  5. PREDNISOLONE. [Suspect]
     Active Substance: PREDNISOLONE
     Indication: PAIN
     Dosage: 20 MILLIGRAM DAILY;
     Route: 065
     Dates: start: 20180115
  6. MOMETASONE [Concomitant]
     Active Substance: MOMETASONE
     Route: 065
     Dates: start: 20110808
  7. SPIRONOLACTONE. [Concomitant]
     Active Substance: SPIRONOLACTONE
     Route: 065
     Dates: start: 20140722
  8. ALENDRONIC ACID [Concomitant]
     Active Substance: ALENDRONIC ACID
     Route: 065
     Dates: start: 20180215
  9. HIPREX [Concomitant]
     Active Substance: METHENAMINE HIPPURATE
     Route: 065
     Dates: start: 20170715
  10. FRAGMIN [Suspect]
     Active Substance: DALTEPARIN SODIUM
     Indication: DEEP VEIN THROMBOSIS
  11. CONCERTA [Suspect]
     Active Substance: METHYLPHENIDATE HYDROCHLORIDE
     Indication: PAIN
     Dosage: 1 DOSAGE FORMS DAILY;
     Route: 048
     Dates: start: 20180111, end: 20180227
  12. SUMATRIPTAN. [Concomitant]
     Active Substance: SUMATRIPTAN
     Route: 065
     Dates: start: 20170105
  13. SERTRALINE [Suspect]
     Active Substance: SERTRALINE HYDROCHLORIDE
     Indication: DEPRESSED MOOD
     Dosage: 100 MILLIGRAM DAILY;
     Route: 048
     Dates: start: 20140306
  14. TAVEGYL [Concomitant]
     Active Substance: CLEMASTINE FUMARATE
     Route: 065
     Dates: start: 20130605
  15. SYMBICORT [Concomitant]
     Active Substance: BUDESONIDE\FORMOTEROL FUMARATE DIHYDRATE
     Route: 065
     Dates: start: 20130605
  16. ALVEDON [Concomitant]
     Active Substance: ACETAMINOPHEN
     Route: 065
     Dates: start: 20160727
  17. FRAGMIN [Suspect]
     Active Substance: DALTEPARIN SODIUM
     Indication: PULMONARY EMBOLISM
     Dosage: 15000 IU (INTERNATIONAL UNIT) DAILY;
     Route: 058
     Dates: start: 2014, end: 201802
  18. TOP DENT FLUOR [Concomitant]
     Route: 065
     Dates: start: 20170925
  19. FURIX [Concomitant]
     Active Substance: FUROSEMIDE
     Route: 065
     Dates: start: 20130315
  20. BRICANYL [Concomitant]
     Active Substance: TERBUTALINE SULFATE
     Route: 065
     Dates: start: 20130717

REACTIONS (1)
  - Abdominal wall haematoma [Not Recovered/Not Resolved]

NARRATIVE: CASE EVENT DATE: 20180224
